FAERS Safety Report 19155853 (Version 3)
Quarter: 2021Q3

REPORT INFORMATION
  Report Type: Report from Study
  Country: US (occurrence: US)
  Receive Date: 20210419
  Receipt Date: 20210705
  Transmission Date: 20211014
  Serious: No
  Sender: FDA-Public Use
  Company Number: NVSC2021US086163

PATIENT
  Sex: Female

DRUGS (1)
  1. ENTRESTO [Suspect]
     Active Substance: SACUBITRIL\VALSARTAN
     Indication: MITRAL VALVE PROLAPSE
     Dosage: 100 MG, BID (49/51 MG)
     Route: 048
     Dates: start: 20201001

REACTIONS (2)
  - Hypotension [Unknown]
  - Dyspepsia [Unknown]
